FAERS Safety Report 9461213 (Version 1)
Quarter: 2013Q3

REPORT INFORMATION
  Report Type: Report from Study
  Country: JP (occurrence: JP)
  Receive Date: 20130816
  Receipt Date: 20130816
  Transmission Date: 20140515
  Serious: Yes (Other)
  Sender: FDA-Public Use
  Company Number: JP-ROCHE-1261161

PATIENT
  Sex: 0

DRUGS (9)
  1. RITUXIMAB [Suspect]
     Indication: DIFFUSE LARGE B-CELL LYMPHOMA
     Route: 065
  2. CYCLOPHOSPHAMIDE [Suspect]
     Indication: DIFFUSE LARGE B-CELL LYMPHOMA
     Route: 065
  3. ADRIAMYCIN [Suspect]
     Indication: DIFFUSE LARGE B-CELL LYMPHOMA
     Dosage: ON DAY 1
     Route: 065
  4. VINCRISTINE [Suspect]
     Indication: DIFFUSE LARGE B-CELL LYMPHOMA
     Dosage: ON DAY 1 [MAXIMUM 2 MG],
     Route: 065
  5. PREDNISONE [Suspect]
     Indication: DIFFUSE LARGE B-CELL LYMPHOMA
     Dosage: ON DAYS 1-5
     Route: 065
  6. CARBOPLATIN [Suspect]
     Indication: DIFFUSE LARGE B-CELL LYMPHOMA
     Dosage: ON DAY 2;
     Route: 065
  7. CYTARABINE [Suspect]
     Indication: DIFFUSE LARGE B-CELL LYMPHOMA
     Dosage: 2G/M2 ON DAY 3
     Route: 065
  8. DEXAMETHASONE [Suspect]
     Indication: DIFFUSE LARGE B-CELL LYMPHOMA
     Dosage: ON DAYS 2-5)
     Route: 065
  9. ACYCLOVIR [Concomitant]
     Indication: PROPHYLAXIS
     Dosage: PROPHYLAXIS GIVEN FOR 35 DAYS AFTER TRANSPLANTATION
     Route: 065

REACTIONS (11)
  - Leukopenia [Unknown]
  - Anaemia [Unknown]
  - Thrombocytopenia [Unknown]
  - Febrile neutropenia [Unknown]
  - Sepsis [Unknown]
  - Cytomegalovirus infection [Unknown]
  - Decreased appetite [Unknown]
  - Diarrhoea [Unknown]
  - Stomatitis [Unknown]
  - Cardiac disorder [Unknown]
  - Herpes zoster [Unknown]
